FAERS Safety Report 6599357-5 (Version None)
Quarter: 2010Q1

REPORT INFORMATION
  Report Type: 
  Country: None (occurrence: None)
  Receive Date: 20100224
  Receipt Date: 20100217
  Transmission Date: 20100710
  Serious: Yes (Death, Other)
  Sender: FDA-Public Use
  Company Number: JP-BAYER-201010838BYL

PATIENT
  Age: 60 Year
  Sex: Male

DRUGS (4)
  1. FLUDARA [Suspect]
     Indication: UNRELATED DONOR BONE MARROW TRANSPLANTATION THERAPY
     Route: 065
  2. MELPHALAN [Concomitant]
     Route: 065
  3. TACROLIMUS HYDRATE [Concomitant]
     Indication: PROPHYLAXIS AGAINST GRAFT VERSUS HOST DISEASE
     Route: 065
  4. METHOTREXATE [Concomitant]
     Indication: PROPHYLAXIS AGAINST GRAFT VERSUS HOST DISEASE
     Route: 065

REACTIONS (6)
  - ACUTE GRAFT VERSUS HOST DISEASE [None]
  - CYTOMEGALOVIRUS ENTERITIS [None]
  - CYTOMEGALOVIRUS TEST POSITIVE [None]
  - LUNG INFECTION PSEUDOMONAL [None]
  - PNEUMATOSIS INTESTINALIS [None]
  - SMALL INTESTINAL HAEMORRHAGE [None]
